FAERS Safety Report 5186444-1 (Version None)
Quarter: 2006Q4

REPORT INFORMATION
  Report Type: 
  Country: None (occurrence: None)
  Receive Date: 20061213
  Receipt Date: 20061130
  Transmission Date: 20070319
  Serious: Yes (Other)
  Sender: FDA-Public Use
  Company Number: 2006146928

PATIENT
  Age: 12 Month
  Sex: Male

DRUGS (2)
  1. ZYVOX [Suspect]
     Indication: PNEUMONIA STAPHYLOCOCCAL
     Dosage: 300 MG (100 MG, 3 IN 1 D), INTRAVENOUS
     Route: 042
     Dates: start: 20061114, end: 20061123
  2. DESMOPRESSIN ACETATE [Concomitant]

REACTIONS (1)
  - HYPONATRAEMIA [None]
